FAERS Safety Report 4797115-5 (Version None)
Quarter: 2005Q3

REPORT INFORMATION
  Report Type: 
  Country: None (occurrence: None)
  Receive Date: 20050916
  Receipt Date: 20050304
  Transmission Date: 20060218
  Serious: Yes (Other)
  Sender: FDA-Public Use
  Company Number: US-JNJFOC-20050302188

PATIENT
  Age: 70 Year
  Sex: Male
  Weight: 77.1115 kg

DRUGS (3)
  1. TOPAMAX [Suspect]
     Indication: TRANSIENT ISCHAEMIC ATTACK
     Dosage: 100 MG, 2 IN 1 DAY
     Dates: start: 20041201
  2. PLAVIX [Concomitant]
  3. PLAVIX [Concomitant]

REACTIONS (4)
  - BALANCE DISORDER [None]
  - CYSTITIS [None]
  - EPISTAXIS [None]
  - WEIGHT DECREASED [None]
